FAERS Safety Report 8421177-7 (Version None)
Quarter: 2012Q2

REPORT INFORMATION
  Report Type: 
  Country: None (occurrence: None)
  Receive Date: 20120604
  Receipt Date: 20120604
  Transmission Date: 20120825
  Serious: No
  Sender: FDA-Public Use
  Company Number: None

PATIENT
  Age: 50 Year
  Sex: Male
  Weight: 91.4 kg

DRUGS (1)
  1. SULFAMETHOXAZOLE AND TRIMETHOPRIM [Suspect]
     Indication: INFECTION
     Dosage: 800/160 MG BID PO
     Route: 048
     Dates: start: 20100112, end: 20120125

REACTIONS (3)
  - ANGIOEDEMA [None]
  - LIP SWELLING [None]
  - THROAT TIGHTNESS [None]
